FAERS Safety Report 21714740 (Version 1)
Quarter: 2022Q4

REPORT INFORMATION
  Report Type: Spontaneous
  Country: US (occurrence: None)
  Receive Date: 20221209
  Receipt Date: 20221209
  Transmission Date: 20230113
  Serious: No
  Sender: FDA-Public Use
  Company Number: None

PATIENT
  Age: 35 Year
  Sex: Male

DRUGS (2)
  1. BUPROPION [Suspect]
     Active Substance: BUPROPION
     Indication: Bipolar disorder
     Dates: start: 20220801, end: 20220905
  2. BUPROPION [Suspect]
     Active Substance: BUPROPION
     Indication: Mania

REACTIONS (5)
  - Paranoia [None]
  - Irritability [None]
  - Agitation [None]
  - Mania [None]
  - Therapy cessation [None]

NARRATIVE: CASE EVENT DATE: 20220905
